FAERS Safety Report 8429372-8 (Version None)
Quarter: 2012Q2

REPORT INFORMATION
  Report Type: 
  Country: None (occurrence: None)
  Receive Date: 20120612
  Receipt Date: 20120607
  Transmission Date: 20120825
  Serious: Yes (Hospitalization)
  Sender: FDA-Public Use
  Company Number: FR-PFIZER INC-2012136735

PATIENT
  Age: 68 Year
  Sex: Male

DRUGS (4)
  1. ASPIRIN [Concomitant]
     Indication: PROPHYLAXIS
     Dosage: UNK
     Route: 048
  2. PANTOPRAZOLE [Concomitant]
     Indication: PROPHYLAXIS AGAINST GASTROINTESTINAL ULCER
     Dosage: UNK
     Route: 048
  3. TAZOBACTAM [Suspect]
     Indication: PLEURISY
     Dosage: 1 DF, 3X/DAY
     Route: 042
     Dates: start: 20120424, end: 20120501
  4. AMLODIPINE BESYLATE [Concomitant]
     Indication: HYPERTENSION
     Dosage: UNK
     Route: 048

REACTIONS (1)
  - FEBRILE NEUTROPENIA [None]
